FAERS Safety Report 9680370 (Version 1)
Quarter: 2013Q4

REPORT INFORMATION
  Report Type: Spontaneous
  Country: CH (occurrence: CH)
  Receive Date: 20131111
  Receipt Date: 20131111
  Transmission Date: 20140711
  Serious: Yes (Hospitalization)
  Sender: FDA-Public Use
  Company Number: CH-MERCK-1311CHE002410

PATIENT
  Age: 72 Year
  Sex: Female

DRUGS (13)
  1. REMERON [Suspect]
     Indication: DEPRESSION
     Dosage: 30 MG, QD
     Route: 048
     Dates: start: 201309, end: 2013
  2. REMERON [Interacting]
     Dosage: UNK
     Route: 048
     Dates: start: 2013
  3. TOREM [Interacting]
     Indication: ESSENTIAL HYPERTENSION
     Dosage: 5 MG, QD
     Route: 048
     Dates: start: 201309, end: 2013
  4. CIPRALEX [Interacting]
     Indication: DEPRESSION
     Dosage: 10 MG, QD
     Route: 048
     Dates: start: 201309, end: 2013
  5. CIPRALEX [Interacting]
     Dosage: UNK
     Route: 048
     Dates: start: 2013
  6. CONCOR [Concomitant]
     Dosage: 1.25 MG, QD
     Route: 048
  7. NORVASC [Concomitant]
     Dosage: 10 MG, QD
     Route: 048
  8. PANTOPRAZOLE [Concomitant]
     Dosage: 40 MG, QD
     Route: 048
  9. DUPHALAC [Concomitant]
     Dosage: 20 ML, PRN
     Route: 048
     Dates: start: 201309
  10. BENERVA [Concomitant]
     Dosage: 100 MG, TID
     Route: 048
  11. BECOZYM [Concomitant]
     Dosage: 1 DF, QD
     Route: 048
  12. KONAKION [Concomitant]
     Dosage: 10 MG, QD
     Route: 040
     Dates: start: 201309
  13. NICOTINELL [Concomitant]
     Dosage: UNK
     Route: 062
     Dates: start: 201309

REACTIONS (3)
  - Disorientation [Recovering/Resolving]
  - Confusional state [Recovering/Resolving]
  - Hyponatraemia [Recovered/Resolved]
